FAERS Safety Report 5783022-8 (Version None)
Quarter: 2008Q2

REPORT INFORMATION
  Report Type: 
  Country: None (occurrence: None)
  Receive Date: 20080619
  Receipt Date: 20080619
  Transmission Date: 20081010
  Serious: Yes (Hospitalization)
  Sender: FDA-Public Use
  Company Number: None

PATIENT
  Sex: Male
  Weight: 96 kg

DRUGS (3)
  1. BEVACIZUMAB (RHUMAB VEGF) [Suspect]
     Dosage: 479 MG
     Dates: end: 20080616
  2. LEUCOVORIN CALCIUM [Suspect]
     Dosage: 864 MG
     Dates: end: 20080616
  3. ELOXATIN [Suspect]
     Dosage: 184 MG
     Dates: end: 20080616

REACTIONS (4)
  - GAIT DISTURBANCE [None]
  - HYPERTENSIVE EMERGENCY [None]
  - HYPOAESTHESIA [None]
  - TREATMENT NONCOMPLIANCE [None]
